FAERS Safety Report 8267361-7 (Version None)
Quarter: 2012Q2

REPORT INFORMATION
  Report Type: 
  Country: None (occurrence: None)
  Receive Date: 20120409
  Receipt Date: 20120329
  Transmission Date: 20120825
  Serious: Yes (Hospitalization, Other)
  Sender: FDA-Public Use
  Company Number: PHHY2012AU024957

PATIENT
  Sex: Male

DRUGS (1)
  1. CLOZARIL [Suspect]
     Dosage: 500 MG, UNK
     Dates: start: 19991110, end: 20120320

REACTIONS (3)
  - NEUTROPENIA [None]
  - MENTAL IMPAIRMENT [None]
  - LEUKOPENIA [None]
